FAERS Safety Report 24523836 (Version 1)
Quarter: 2024Q4

REPORT INFORMATION
  Report Type: Spontaneous
  Country: GB (occurrence: GB)
  Receive Date: 20241018
  Receipt Date: 20241018
  Transmission Date: 20250115
  Serious: Yes (Other)
  Sender: TEVA
  Company Number: GB-TEVA-VS-3255167

PATIENT
  Sex: Male

DRUGS (1)
  1. ALBUTEROL [Suspect]
     Active Substance: ALBUTEROL
     Indication: Product used for unknown indication
     Dosage: CONTAINER SIZE/TYPE:200 DOSE?100 MCG/DOSE? INHALER
     Route: 055
     Dates: start: 2024

REACTIONS (4)
  - Alcoholism [Unknown]
  - Device ineffective [Unknown]
  - Product administration error [Unknown]
  - Product prescribing error [Unknown]
